FAERS Safety Report 10055831 (Version 3)
Quarter: 2014Q2

REPORT INFORMATION
  Report Type: Spontaneous
  Country: US (occurrence: US)
  Receive Date: 20140403
  Receipt Date: 20140428
  Transmission Date: 20141212
  Serious: No
  Sender: FDA-Public Use
  Company Number: US-009507513-1403USA012673

PATIENT
  Age: 14 Year
  Sex: Female
  Weight: 48.98 kg

DRUGS (2)
  1. PROVENTIL [Suspect]
     Indication: ASTHMA
     Dosage: UNK, PRN
     Dates: start: 20140317
  2. LEXAPRO [Concomitant]
     Indication: AFFECTIVE DISORDER
     Dosage: UNK
     Route: 048
     Dates: start: 201212

REACTIONS (1)
  - Dysgeusia [Not Recovered/Not Resolved]
